FAERS Safety Report 6391542-0 (Version None)
Quarter: 2009Q4

REPORT INFORMATION
  Report Type: 
  Country: None (occurrence: None)
  Receive Date: 20091005
  Receipt Date: 20090625
  Transmission Date: 20100525
  Serious: Yes (Hospitalization, Other)
  Sender: FDA-Public Use
  Company Number: CASE ID NO. 1717161

PATIENT
  Age: 57 Year
  Sex: Female

DRUGS (1)
  1. SECRET PLATINUM KUKU COCO BUTTER INVISIBLE SOLID OTC ANTIPERSPIRANT, P [Suspect]
     Indication: HYPERHIDROSIS
     Dosage: GENERALLY USED 1X/DAY APPLIED TO UNDERARMS
     Dates: start: 20090501

REACTIONS (2)
  - HEPATIC FAILURE [None]
  - RENAL FAILURE [None]
